FAERS Safety Report 9158045 (Version 1)
Quarter: 2013Q1

REPORT INFORMATION
  Report Type: Spontaneous
  Country: US (occurrence: US)
  Receive Date: 20130312
  Receipt Date: 20130312
  Transmission Date: 20140127
  Serious: Yes (Hospitalization)
  Sender: FDA-Public Use
  Company Number: US-GLAXOSMITHKLINE-A0718146A

PATIENT
  Age: 57 Year
  Sex: Female
  Weight: 113.6 kg

DRUGS (7)
  1. AVANDIA [Suspect]
     Indication: TYPE 2 DIABETES MELLITUS
     Dosage: 8MG PER DAY
     Route: 048
     Dates: start: 20031106, end: 20071206
  2. ACCUPRIL [Concomitant]
  3. PROCARDIA XL [Concomitant]
  4. POTASSIUM [Concomitant]
  5. NORVAS [Concomitant]
  6. BENICAR [Concomitant]
  7. NEXIUM [Concomitant]

REACTIONS (2)
  - Cardiac failure congestive [Not Recovered/Not Resolved]
  - Heart injury [Unknown]
